FAERS Safety Report 9767207 (Version 1)
Quarter: 2013Q4

REPORT INFORMATION
  Report Type: Spontaneous
  Country: US (occurrence: US)
  Receive Date: 20131217
  Receipt Date: 20131217
  Transmission Date: 20140711
  Serious: No
  Sender: FDA-Public Use
  Company Number: US-GLAXOSMITHKLINE-A1043527A

PATIENT
  Age: 72 Year
  Sex: Male

DRUGS (5)
  1. VOTRIENT [Suspect]
     Indication: RENAL CANCER
     Dosage: 400MG PER DAY
     Route: 065
  2. AVAPRO [Concomitant]
  3. METFORMIN [Concomitant]
  4. ATORVASTATIN [Concomitant]
  5. IMODIUM AD [Concomitant]

REACTIONS (6)
  - Diarrhoea [Unknown]
  - Hyperglycaemia [Unknown]
  - Hypertension [Not Recovered/Not Resolved]
  - Hypercholesterolaemia [Unknown]
  - Fatigue [Unknown]
  - Feeling drunk [Unknown]
